FAERS Safety Report 8789337 (Version 1)
Quarter: 2012Q4

REPORT INFORMATION
  Report Type: Spontaneous
  Country: KR (occurrence: None)
  Receive Date: 20120905
  Receipt Date: 20120905
  Transmission Date: 20130627
  Serious: Yes (Hospitalization)
  Sender: FDA-Public Use
  Company Number: JP-2012-16135

PATIENT
  Age: 54 Year
  Sex: Male

DRUGS (5)
  1. PLETAAL [Suspect]
     Route: 048
  2. CARBAMAZEPINE [Suspect]
     Route: 048
  3. ASPIRIN (ACETYLSALICYLIC ACID) [Concomitant]
  4. CLOPIDOGREL SULFATE (CLOPIDOGREL SULFATE) [Concomitant]
  5. CORTICOSTEROIDS (UNSPECIFIED) [Suspect]

REACTIONS (2)
  - Drug reaction with eosinophilia and systemic symptoms [None]
  - Human herpesvirus 6 infection [None]
